FAERS Safety Report 4717322-7 (Version None)
Quarter: 2005Q3

REPORT INFORMATION
  Report Type: 
  Country: None (occurrence: None)
  Receive Date: 20050715
  Receipt Date: 20050705
  Transmission Date: 20060218
  Serious: Yes (Hospitalization, Disabling, Other)
  Sender: FDA-Public Use
  Company Number: 920428-SK603

PATIENT
  Age: 71 Year
  Sex: Female
  Weight: 47.6277 kg

DRUGS (4)
  1. FLAGYL [Suspect]
     Indication: GASTROENTERITIS HELICOBACTER
     Dosage: 2 GRAM (QD), ORAL
     Route: 048
     Dates: start: 19910101, end: 19910101
  2. DOXYCYCLINE HYCLATE (DOXYCYCLINE HYCLATE) [Concomitant]
  3. FAMOTIDINE [Concomitant]
  4. BISMUTH SUBSALICYLATE (BISMUTH SUBSALICYLATE) [Concomitant]

REACTIONS (40)
  - ABASIA [None]
  - ACTIVITIES OF DAILY LIVING IMPAIRED [None]
  - AGEUSIA [None]
  - ANOREXIA [None]
  - AORTIC VALVE PROLAPSE [None]
  - ASTHENIA [None]
  - BLINDNESS UNILATERAL [None]
  - BURNING SENSATION [None]
  - CHROMATURIA [None]
  - CONVULSION [None]
  - DEPRESSION [None]
  - DRUG EFFECT DECREASED [None]
  - DRUG INEFFECTIVE [None]
  - DYSKINESIA [None]
  - DYSPNOEA [None]
  - HYPOAESTHESIA [None]
  - IMPAIRED DRIVING ABILITY [None]
  - INFLUENZA LIKE ILLNESS [None]
  - INSOMNIA [None]
  - MACULAR HOLE [None]
  - MITRAL VALVE PROLAPSE [None]
  - MUSCULOSKELETAL STIFFNESS [None]
  - NAUSEA [None]
  - NERVE INJURY [None]
  - NERVE ROOT LESION [None]
  - NEUROPATHY PERIPHERAL [None]
  - OEDEMA PERIPHERAL [None]
  - ORAL CANDIDIASIS [None]
  - OVERDOSE [None]
  - PAIN [None]
  - PAIN IN EXTREMITY [None]
  - PARAESTHESIA [None]
  - PERIPHERAL NERVE INJURY [None]
  - PYREXIA [None]
  - REFUSAL OF TREATMENT BY PATIENT [None]
  - TREMOR [None]
  - TRICUSPID VALVE INCOMPETENCE [None]
  - VOCAL CORD DISORDER [None]
  - WEIGHT DECREASED [None]
  - WHEELCHAIR USER [None]
